FAERS Safety Report 15375548 (Version 2)
Quarter: 2018Q4

REPORT INFORMATION
  Report Type: Report from Study
  Country: IT (occurrence: IT)
  Receive Date: 20180912
  Receipt Date: 20181009
  Transmission Date: 20190204
  Serious: Yes (Hospitalization)
  Sender: FDA-Public Use
  Company Number: IT-PFIZER INC-2018363317

PATIENT
  Age: 57 Year
  Sex: Female

DRUGS (3)
  1. LORAZEPAM. [Suspect]
     Active Substance: LORAZEPAM
     Dosage: 20 GTT, SINGLE
     Route: 048
     Dates: start: 20180530, end: 20180530
  2. ESILGAN [Suspect]
     Active Substance: ESTAZOLAM
     Dosage: 60 MG, SINGLE
     Route: 048
     Dates: start: 20180530, end: 20180530
  3. STILNOX [Suspect]
     Active Substance: ZOLPIDEM TARTRATE
     Dosage: 30 DF, SINGLE
     Route: 048
     Dates: start: 20180530, end: 20180530

REACTIONS (2)
  - Hypokinesia [Recovering/Resolving]
  - Drug abuse [Recovering/Resolving]

NARRATIVE: CASE EVENT DATE: 20180530
